FAERS Safety Report 8845257 (Version 1)
Quarter: 2012Q4

REPORT INFORMATION
  Report Type: Spontaneous
  Country: US (occurrence: None)
  Receive Date: 20121016
  Receipt Date: 20121016
  Transmission Date: 20130627
  Serious: Yes (Death, Hospitalization)
  Sender: FDA-Public Use
  Company Number: None

PATIENT
  Age: 58 Year
  Sex: Female
  Weight: 105 kg

DRUGS (5)
  1. PANITUMUMAB [Suspect]
     Indication: OVARIAN CANCER
     Route: 042
     Dates: start: 20110902, end: 20120720
  2. LOVENOX [Concomitant]
  3. ATENOLOL [Concomitant]
  4. LOMOTIL [Concomitant]
  5. GEMCITABINE [Concomitant]

REACTIONS (23)
  - Fatigue [None]
  - Dyspnoea [None]
  - Chills [None]
  - Hypophagia [None]
  - Tachycardia [None]
  - Eschar [None]
  - Pleural effusion [None]
  - Generalised oedema [None]
  - Nephrolithiasis [None]
  - Abdominal mass [None]
  - Anaemia [None]
  - Gastric haemorrhage [None]
  - Calciphylaxis [None]
  - Metabolic acidosis [None]
  - Renal failure acute [None]
  - Pyuria [None]
  - Sepsis [None]
  - Renal failure [None]
  - Renal tubular necrosis [None]
  - Lethargy [None]
  - Serratia test positive [None]
  - Slow response to stimuli [None]
  - Platelet count decreased [None]
